FAERS Safety Report 8189332-1 (Version None)
Quarter: 2012Q1

REPORT INFORMATION
  Report Type: 
  Country: None (occurrence: None)
  Receive Date: 20120302
  Receipt Date: 20120220
  Transmission Date: 20120608
  Serious: Yes (Hospitalization, Other)
  Sender: FDA-Public Use
  Company Number: 7114200

PATIENT
  Age: 26 Year
  Sex: Male

DRUGS (4)
  1. INSULIN LISPRO (INSULIN LISPRO) [Concomitant]
  2. SIMVASTATIN [Concomitant]
  3. LEVOTHYROXINE SODIUM [Suspect]
     Indication: THYROID DISORDER
     Dosage: 150 MCG (150 MCG,1 IN 1 D)
  4. LANTUS [Suspect]
     Indication: TYPE 1 DIABETES MELLITUS
     Dosage: NINE 3-ML CARTRIDGES (2700 UNITS) (3ML) ; 3-ML CARTRIDGES (2700 UNITS) ; 40 UNITS DAILY SUBCUTANEOUS
     Route: 058

REACTIONS (11)
  - BLOOD THYROID STIMULATING HORMONE INCREASED [None]
  - BORDERLINE PERSONALITY DISORDER [None]
  - ABDOMINAL PAIN UPPER [None]
  - HEPATITIS [None]
  - LIVER INJURY [None]
  - INCORRECT DOSE ADMINISTERED [None]
  - INJECTION SITE NECROSIS [None]
  - BLOOD GLUCOSE DECREASED [None]
  - HEPATOMEGALY [None]
  - TREATMENT NONCOMPLIANCE [None]
  - INTENTIONAL OVERDOSE [None]
